FAERS Safety Report 7857908-4 (Version None)
Quarter: 2011Q4

REPORT INFORMATION
  Report Type: 
  Country: None (occurrence: None)
  Receive Date: 20111027
  Receipt Date: 20110225
  Transmission Date: 20120403
  Serious: Yes (Disabling, Other)
  Sender: FDA-Public Use
  Company Number: US-BAYER-2011-018896

PATIENT
  Sex: Female
  Weight: 76 kg

DRUGS (1)
  1. ALEVE (CAPLET) [Suspect]
     Indication: HEADACHE
     Dosage: 1 DF, ONCE
     Route: 048
     Dates: start: 20110218, end: 20110218

REACTIONS (8)
  - HYPERSENSITIVITY [None]
  - DYSPNOEA [None]
  - OCULAR HYPERAEMIA [None]
  - FATIGUE [None]
  - ERYTHEMA [None]
  - PRURITUS [None]
  - PHARYNGEAL OEDEMA [None]
  - DIZZINESS [None]
